FAERS Safety Report 21136061 (Version 1)
Quarter: 2022Q3

REPORT INFORMATION
  Report Type: Report from Study
  Country: US (occurrence: US)
  Receive Date: 20220727
  Receipt Date: 20220727
  Transmission Date: 20221027
  Serious: Yes (Other)
  Sender: FDA-Public Use
  Company Number: US-BTGSP-US-BTGSP-22-0097

PATIENT
  Age: 29 Year
  Sex: Male

DRUGS (4)
  1. CROFAB [Suspect]
     Active Substance: CROTALIDAE POLYVALENT IMMUNE FAB (OVINE)
     Indication: Snake bite
     Dosage: 4 VIALS, 2 HOURS AFTER SNAKE BITE
     Route: 065
     Dates: start: 202205
  2. CROFAB [Suspect]
     Active Substance: CROTALIDAE POLYVALENT IMMUNE FAB (OVINE)
     Dosage: 2 VIALS, 8 HOURS AFTER SNAKE BITE
     Route: 065
     Dates: start: 202205
  3. CROFAB [Suspect]
     Active Substance: CROTALIDAE POLYVALENT IMMUNE FAB (OVINE)
     Dosage: 2 VIALS, 16 HOURS AFTER SNAKE BITE
     Route: 065
     Dates: start: 202205
  4. CROFAB [Suspect]
     Active Substance: CROTALIDAE POLYVALENT IMMUNE FAB (OVINE)
     Dosage: 0 VIALS, 24 HOURS AFTER SNAKE BITE
     Route: 065
     Dates: start: 202205

REACTIONS (4)
  - Mobility decreased [Unknown]
  - Underdose [Unknown]
  - Off label use [Unknown]
  - Inappropriate schedule of product administration [Unknown]

NARRATIVE: CASE EVENT DATE: 20220501
